FAERS Safety Report 6420369-6 (Version None)
Quarter: 2009Q4

REPORT INFORMATION
  Report Type: 
  Country: None (occurrence: None)
  Receive Date: 20091021
  Receipt Date: 20090527
  Transmission Date: 20100525
  Serious: No
  Sender: FDA-Public Use
  Company Number: ALL1-2009-01476

PATIENT
  Age: 37 Year
  Sex: Male
  Weight: 176.9 kg

DRUGS (2)
  1. VYVANSE [Suspect]
     Indication: ATTENTION DEFICIT/HYPERACTIVITY DISORDER
     Dosage: 100 MG, 1X/DAY; QD (TWO 50MG CAPSULES), ORAL
     Route: 048
     Dates: start: 20080901
  2. CITALOPRAM (CITALOPRAM) TABLET [Concomitant]

REACTIONS (4)
  - DRUG EFFECT DECREASED [None]
  - INCREASED APPETITE [None]
  - OVERDOSE [None]
  - WEIGHT INCREASED [None]
